FAERS Safety Report 6436143-0 (Version None)
Quarter: 2009Q4

REPORT INFORMATION
  Report Type: 
  Country: None (occurrence: None)
  Receive Date: 20091111
  Receipt Date: 20091106
  Transmission Date: 20100525
  Serious: Yes (Disabling, Other)
  Sender: FDA-Public Use
  Company Number: BR-BAYER-200913938LA

PATIENT
  Age: 47 Year
  Sex: Female
  Weight: 83 kg

DRUGS (14)
  1. BETAFERON [Suspect]
     Indication: MULTIPLE SCLEROSIS
     Dosage: BETAJECT
     Route: 058
     Dates: start: 20070901, end: 20090501
  2. BETAFERON [Suspect]
     Dosage: BETAJECT
     Route: 058
     Dates: end: 20090701
  3. BETAFERON [Suspect]
     Dosage: BETAJECT
     Route: 058
  4. APRAZ [Concomitant]
     Indication: DEPRESSION
     Dosage: TOTAL DAILY DOSE: 1.5 DF
     Route: 048
     Dates: start: 20080101
  5. APRAZ [Concomitant]
     Dosage: HALF TABLET IN THE MORNING AND 1 TABLET AT NIGHT
     Route: 065
  6. APRAZ [Concomitant]
     Dosage: 2 TABLETS DAILY
     Route: 065
  7. CYMBALTA [Concomitant]
     Indication: DEPRESSION
     Route: 048
     Dates: start: 20080101
  8. AMATO [Concomitant]
     Indication: HEADACHE
     Route: 065
     Dates: start: 20090601
  9. IMURAN [Concomitant]
     Indication: DRUG USE FOR UNKNOWN INDICATION
     Dosage: 3 TABLETS AFTER LUNCH
     Route: 065
     Dates: start: 20090601
  10. LOSARTAN [Concomitant]
     Indication: HYPERTENSION
     Route: 065
  11. PURAN T4 [Concomitant]
     Indication: HYPOTHYROIDISM
     Route: 065
  12. AMYTRIL [Concomitant]
     Indication: ANTIDEPRESSANT THERAPY
     Route: 048
     Dates: start: 20090501
  13. ROHYPNOL [Concomitant]
     Indication: ANTIDEPRESSANT THERAPY
     Route: 065
  14. ARADOIS [Concomitant]
     Indication: HYPERTENSION
     Dosage: AS USED: 50 MG
     Route: 048
     Dates: start: 20050101

REACTIONS (19)
  - ABASIA [None]
  - BLINDNESS [None]
  - CHOLELITHIASIS [None]
  - DIPLEGIA [None]
  - DYSPNOEA EXERTIONAL [None]
  - FATIGUE [None]
  - GAIT DISTURBANCE [None]
  - HEPATIC STEATOSIS [None]
  - HYPERAESTHESIA [None]
  - HYPERTENSION [None]
  - HYPOTHYROIDISM [None]
  - INJECTION SITE NODULE [None]
  - IRON DEFICIENCY ANAEMIA [None]
  - MULTIPLE SCLEROSIS [None]
  - MULTIPLE SCLEROSIS RELAPSE [None]
  - MUSCULAR WEAKNESS [None]
  - NEURITIS [None]
  - PAIN OF SKIN [None]
  - VOMITING [None]
